FAERS Safety Report 9974176 (Version 1)
Quarter: 2014Q1

REPORT INFORMATION
  Report Type: Spontaneous
  Country: FR (occurrence: FR)
  Receive Date: 20140306
  Receipt Date: 20140306
  Transmission Date: 20141002
  Serious: Yes (Hospitalization)
  Sender: FDA-Public Use
  Company Number: FR-GLAXOSMITHKLINE-B0973134A

PATIENT
  Age: 22 Year
  Sex: Male

DRUGS (2)
  1. ARIXTRA [Suspect]
     Indication: THROMBOSIS PROPHYLAXIS
     Route: 058
     Dates: start: 20131224, end: 20140103
  2. GILENYA [Concomitant]
     Indication: MULTIPLE SCLEROSIS
     Dosage: 1TAB PER DAY
     Route: 048
     Dates: start: 201305

REACTIONS (11)
  - Deep vein thrombosis [Recovering/Resolving]
  - Haematoma [Recovered/Resolved]
  - Staphylococcal sepsis [Unknown]
  - Haematoma infection [Unknown]
  - Pyrexia [Unknown]
  - Feeling hot [Unknown]
  - Pain in extremity [Unknown]
  - Local swelling [Unknown]
  - Ecchymosis [Unknown]
  - Lymphopenia [Unknown]
  - Drug ineffective [Unknown]
